FAERS Safety Report 17980523 (Version 1)
Quarter: 2020Q3

REPORT INFORMATION
  Report Type: Report from Study
  Country: None (occurrence: US)
  Receive Date: 20200704
  Receipt Date: 20200704
  Transmission Date: 20201103
  Serious: Yes (Other)
  Sender: FDA-Public Use
  Company Number: US-ABBVIE-19K-163-2845001-00

PATIENT
  Age: 53 Year
  Sex: Female

DRUGS (3)
  1. HUMIRA [Suspect]
     Active Substance: ADALIMUMAB
     Indication: RHEUMATOID ARTHRITIS
     Route: 058
     Dates: start: 20190621, end: 2019
  2. HUMIRA [Suspect]
     Active Substance: ADALIMUMAB
     Route: 058
     Dates: start: 202001, end: 2020
  3. HUMIRA [Suspect]
     Active Substance: ADALIMUMAB
     Route: 058
     Dates: start: 2019

REACTIONS (16)
  - Chronic obstructive pulmonary disease [Unknown]
  - Hernia [Unknown]
  - Therapeutic response shortened [Unknown]
  - Pain [Recovered/Resolved]
  - Joint swelling [Unknown]
  - Discomfort [Unknown]
  - Joint stiffness [Unknown]
  - Feeling abnormal [Unknown]
  - Arthralgia [Recovering/Resolving]
  - Pain [Recovered/Resolved]
  - Fibromyalgia [Unknown]
  - Loss of personal independence in daily activities [Not Recovered/Not Resolved]
  - Gait disturbance [Not Recovered/Not Resolved]
  - Impaired self-care [Unknown]
  - Feeling cold [Not Recovered/Not Resolved]
  - Pain [Unknown]

NARRATIVE: CASE EVENT DATE: 2019
